FAERS Safety Report 5378282-1 (Version None)
Quarter: 2007Q3

REPORT INFORMATION
  Report Type: 
  Country: None (occurrence: None)
  Receive Date: 20070705
  Receipt Date: 20070626
  Transmission Date: 20080115
  Serious: Yes (Hospitalization, Other)
  Sender: FDA-Public Use
  Company Number: US-ELI_LILLY_AND_COMPANY-US200703002705

PATIENT
  Age: 50 Year
  Sex: Male
  Weight: 126.98 kg

DRUGS (1)
  1. ZYPREXA [Suspect]
     Dates: start: 19960101, end: 20000101

REACTIONS (3)
  - DIABETES MELLITUS [None]
  - DIABETIC KETOACIDOSIS [None]
  - VASCULAR GRAFT [None]
